FAERS Safety Report 4485592-9 (Version None)
Quarter: 2004Q4

REPORT INFORMATION
  Report Type: 
  Country: None (occurrence: None)
  Receive Date: 20041026
  Receipt Date: 20030423
  Transmission Date: 20050328
  Serious: Yes (Hospitalization)
  Sender: FDA-Public Use
  Company Number: GB-SOLVAY-00203001096

PATIENT
  Age: 27688 Day
  Sex: Female
  Weight: 79 kg

DRUGS (12)
  1. WARFARIN [Concomitant]
     Indication: ILL-DEFINED DISORDER
     Dosage: DAILY DOSE: UNK.
     Route: 048
  2. BLINDED THERAPY (PLACEBO VS PERINDOPRIL) [Suspect]
     Indication: CARDIAC FAILURE CONGESTIVE
     Dosage: DAILY DOSE: UNK.
     Route: 048
     Dates: start: 20021011
  3. ZOPICLONE [Concomitant]
     Indication: ILL-DEFINED DISORDER
     Dosage: DAILY DOSE: UNK.
     Route: 048
     Dates: end: 20040120
  4. CITALOPRAM [Concomitant]
     Indication: ILL-DEFINED DISORDER
     Dosage: DAILY DOSE: UNK.
     Route: 048
  5. IMDUR [Concomitant]
     Indication: ILL-DEFINED DISORDER
     Dosage: DAILY DOSE: UNK.
     Route: 048
  6. BISOPROLOL FUMARATE [Concomitant]
     Indication: ILL-DEFINED DISORDER
     Dosage: DAILY DOSE: UNK.
     Route: 048
  7. AMLODIPINE [Concomitant]
     Indication: ILL-DEFINED DISORDER
     Dosage: DAILY DOSE: UNK.
     Route: 048
  8. DOXAZOSIN [Concomitant]
     Indication: ILL-DEFINED DISORDER
     Dosage: DAILY DOSE: UNK.
     Route: 048
     Dates: end: 20040120
  9. CO-AMILOFRUSE [Concomitant]
     Indication: ILL-DEFINED DISORDER
     Dosage: DAILY DOSE: UNK.
     Route: 048
  10. LANSOPRAZOLE [Concomitant]
     Indication: ILL-DEFINED DISORDER
     Dosage: DAILY DOSE: UNK.
     Route: 048
  11. TRAMADOL HCL [Concomitant]
     Indication: ILL-DEFINED DISORDER
     Dosage: DAILY DOSE: UNK.
     Route: 048
  12. DF 118 [Concomitant]
     Indication: ILL-DEFINED DISORDER
     Dosage: DAILY DOSE: UNK.
     Route: 065
     Dates: end: 20040120

REACTIONS (7)
  - CARDIAC FAILURE [None]
  - CATHETER SITE INFECTION [None]
  - DYSPNOEA [None]
  - NON-CARDIAC CHEST PAIN [None]
  - OEDEMA PERIPHERAL [None]
  - URINARY INCONTINENCE [None]
  - URINARY TRACT INFECTION [None]
